FAERS Safety Report 11533002 (Version 3)
Quarter: 2016Q1

REPORT INFORMATION
  Report Type: Report from Study
  Country: CA (occurrence: CA)
  Receive Date: 20150921
  Receipt Date: 20160303
  Transmission Date: 20160525
  Serious: Yes (Death, Life-Threatening, Hospitalization)
  Sender: FDA-Public Use
  Company Number: CA-JNJFOC-20150915162

PATIENT
  Age: 77 Year
  Sex: Male

DRUGS (14)
  1. IMBRUVICA [Suspect]
     Active Substance: IBRUTINIB
     Indication: CHRONIC LYMPHOCYTIC LEUKAEMIA
     Route: 048
     Dates: start: 20150324, end: 20150909
  2. PANTOPRAZOLE [Concomitant]
     Active Substance: PANTOPRAZOLE SODIUM
  3. AMLODIPINE [Concomitant]
     Active Substance: AMLODIPINE BESYLATE
  4. ZOPICLONE [Concomitant]
     Active Substance: ZOPICLONE
     Dosage: TAKE 1 OR 2 TABLET ONCE DAILY AS NEEDED
  5. SYNTHROID [Concomitant]
     Active Substance: LEVOTHYROXINE SODIUM
  6. JUBLIA [Concomitant]
     Active Substance: EFINACONAZOLE
     Dosage: 6 ML APPLY TO AFFECTED AREAS
  7. TERAZOSIN [Concomitant]
     Active Substance: TERAZOSIN\TERAZOSIN HYDROCHLORIDE
     Dosage: MAY CAUSE ACUTE HYPOTENSION
  8. LYRICA [Concomitant]
     Active Substance: PREGABALIN
  9. VALTREX [Concomitant]
     Active Substance: VALACYCLOVIR HYDROCHLORIDE
     Dosage: TAKE 1 OR 2 TABLET ONCE DAILY AS NEEDED
  10. LAMISIL [Concomitant]
     Active Substance: TERBINAFINE HYDROCHLORIDE
     Dosage: APPLY TO THE TOES DAILY
  11. FINASTERIDE. [Concomitant]
     Active Substance: FINASTERIDE
  12. ROSUVASTATIN [Concomitant]
     Active Substance: ROSUVASTATIN
  13. TAMSULOSIN [Concomitant]
     Active Substance: TAMSULOSIN
     Dosage: TAKE 30 MINUTES AFTER THE SAME MEAL EVERY DAY
  14. APO-FUROSEMIDE [Concomitant]
     Active Substance: FUROSEMIDE

REACTIONS (9)
  - Septic shock [Unknown]
  - Arthritis bacterial [Unknown]
  - Hypotension [Unknown]
  - Clostridium difficile sepsis [Fatal]
  - Clostridium difficile colitis [Unknown]
  - Delirium [Unknown]
  - Multiple organ dysfunction syndrome [Unknown]
  - Lactic acidosis [Unknown]
  - Acute kidney injury [Unknown]

NARRATIVE: CASE EVENT DATE: 201506
